FAERS Safety Report 22106119 (Version 4)
Quarter: 2023Q2

REPORT INFORMATION
  Report Type: Spontaneous
  Country: US (occurrence: US)
  Receive Date: 20230317
  Receipt Date: 20230529
  Transmission Date: 20230722
  Serious: Yes (Death)
  Sender: FDA-Public Use
  Company Number: US-002147023-NVSC2023US061269

PATIENT
  Sex: Female

DRUGS (3)
  1. TASIGNA [Suspect]
     Active Substance: NILOTINIB
     Indication: Product used for unknown indication
     Dosage: UNK
     Route: 065
     Dates: start: 2010
  2. TASIGNA [Suspect]
     Active Substance: NILOTINIB
     Dosage: UNK
     Route: 065
     Dates: start: 2011
  3. TASIGNA [Suspect]
     Active Substance: NILOTINIB
     Dosage: UNK (START DATE: THREE YEARS AGO)
     Route: 065

REACTIONS (1)
  - Death [Fatal]
